FAERS Safety Report 4898556-8 (Version None)
Quarter: 2006Q1

REPORT INFORMATION
  Report Type: 
  Country: None (occurrence: None)
  Receive Date: 20060130
  Receipt Date: 20060117
  Transmission Date: 20060701
  Serious: Yes (Death)
  Sender: FDA-Public Use
  Company Number: 221178

PATIENT
  Age: 47 Year
  Sex: Male

DRUGS (1)
  1. RITUXAN [Suspect]
     Indication: MUSCULOSKELETAL PAIN
     Dates: start: 20051228, end: 20060104

REACTIONS (3)
  - CARDIAC TAMPONADE [None]
  - CHEST PAIN [None]
  - PERICARDIAL EFFUSION [None]
